FAERS Safety Report 23438809 (Version 4)
Quarter: 2025Q2

REPORT INFORMATION
  Report Type: Spontaneous
  Country: US (occurrence: US)
  Receive Date: 20240124
  Receipt Date: 20250530
  Transmission Date: 20250717
  Serious: Yes (Other)
  Sender: SANOFI AVENTIS
  Company Number: US-SA-SAC20240123000055

PATIENT
  Age: 61 Year
  Sex: Female

DRUGS (2)
  1. DUPIXENT [Suspect]
     Active Substance: DUPILUMAB
     Indication: Asthma
     Dosage: 300 MG, QOW
     Route: 058
     Dates: start: 202312, end: 2024
  2. DUPIXENT [Suspect]
     Active Substance: DUPILUMAB
     Dosage: 300 MG, QOW
     Route: 058

REACTIONS (11)
  - Asthmatic crisis [Unknown]
  - COVID-19 [Recovering/Resolving]
  - Pyrexia [Recovering/Resolving]
  - Pain [Recovering/Resolving]
  - Ageusia [Recovering/Resolving]
  - Headache [Recovering/Resolving]
  - Dysphonia [Recovering/Resolving]
  - Asthenia [Recovering/Resolving]
  - Asthma [Recovered/Resolved]
  - Rebound effect [Recovered/Resolved]
  - Product dose omission in error [Unknown]

NARRATIVE: CASE EVENT DATE: 20231226
